FAERS Safety Report 8865672 (Version 1)
Quarter: 2012Q4

REPORT INFORMATION
  Report Type: 
  Country: US (occurrence: US)
  Receive Date: 20121024
  Receipt Date: 20121024
  Transmission Date: 20130627
  Serious: No
  Sender: FDA-Public Use
  Company Number: US-AMGEN-USASP2012004261

PATIENT
  Age: 54 Year
  Sex: Female
  Weight: 79.37 kg

DRUGS (10)
  1. ENBREL [Suspect]
     Indication: PRODUCT USED FOR UNKNOWN INDICATION
     Dosage: 50 mg, qwk
     Route: 058
  2. METHOTREXATE /00113802/ [Concomitant]
     Dosage: 2.5 mg, UNK
  3. LIPITOR [Concomitant]
     Dosage: 10 mg, UNK
  4. ZOLOFT [Concomitant]
     Dosage: 25 mg, UNK
  5. FOLIC ACID [Concomitant]
     Dosage: 1 mg, UNK
  6. MOBIC [Concomitant]
     Dosage: 15 mg, UNK
  7. PRILOSEC                           /00661201/ [Concomitant]
     Dosage: 10 mg, UNK
  8. MULTIVITAMIN                       /00097801/ [Concomitant]
  9. GLUCOSAMINE [Concomitant]
     Dosage: 1000 mg, UNK
  10. HUMIRA [Concomitant]
     Dosage: 40 mg, UNK

REACTIONS (1)
  - Drug ineffective [Unknown]
